FAERS Safety Report 7776696 (Version 3)
Quarter: 2013Q4

REPORT INFORMATION
  Report Type: Spontaneous
  Country: US (occurrence: US)
  Receive Date: 20110127
  Receipt Date: 20131223
  Transmission Date: 20140711
  Serious: Yes (Other)
  Sender: FDA-Public Use
  Company Number: US-BAYER-2011-007876

PATIENT
  Age: 28 Year
  Sex: Female
  Weight: 68.03 kg

DRUGS (2)
  1. YAZ [Suspect]
     Indication: CONTRACEPTION
     Dosage: UNK
  2. YASMIN [Suspect]
     Indication: CONTRACEPTION
     Dosage: UNK

REACTIONS (5)
  - Cholecystitis [None]
  - Pain [None]
  - Injury [None]
  - Emotional distress [None]
  - Anxiety [None]
